FAERS Safety Report 5042820-9 (Version None)
Quarter: 2006Q2

REPORT INFORMATION
  Report Type: 
  Country: None (occurrence: None)
  Receive Date: 20060627
  Receipt Date: 20060613
  Transmission Date: 20061013
  Serious: Yes (Other)
  Sender: FDA-Public Use
  Company Number: 2006075059

PATIENT
  Sex: Female

DRUGS (4)
  1. FLUCONAZOLE [Suspect]
     Indication: VULVOVAGINAL MYCOTIC INFECTION
     Dosage: ORAL
     Route: 048
  2. AZATHIOPRINE [Suspect]
     Indication: COLITIS ULCERATIVE
     Dosage: 150 MG (50 MG, 3 IN 1 D), ORAL
     Route: 048
  3. OXICONAZOLE (NOS) (OXICONAZOLE) [Suspect]
     Dosage: TOPICAL
     Route: 061
  4. CLOTRIMAZOLE [Concomitant]

REACTIONS (2)
  - DRUG INTERACTION [None]
  - PANCYTOPENIA [None]
